FAERS Safety Report 9265170 (Version 2)
Quarter: 2013Q4

REPORT INFORMATION
  Report Type: Spontaneous
  Country: IT (occurrence: IT)
  Receive Date: 20130501
  Receipt Date: 20131206
  Transmission Date: 20140711
  Serious: Yes (Hospitalization)
  Sender: FDA-Public Use
  Company Number: IT-EISAI INC-E2090-02627-SPO-IT

PATIENT
  Age: 46 Year
  Sex: Male

DRUGS (4)
  1. ZONEGRAN [Suspect]
     Indication: EPILEPSY
     Dosage: 300 MG DAILY
     Route: 048
     Dates: start: 20120614, end: 20130429
  2. TEMOZOLOMIDE [Concomitant]
     Indication: PRODUCT USED FOR UNKNOWN INDICATION
     Dosage: 350 MG DAILY
     Route: 048
  3. ZOFRAN [Concomitant]
     Indication: PRODUCT USED FOR UNKNOWN INDICATION
     Dosage: 4 MG DAILY
     Route: 048
  4. NICETILE [Concomitant]
     Indication: PRODUCT USED FOR UNKNOWN INDICATION
     Dosage: 500 MG DAILY
     Route: 048

REACTIONS (1)
  - Renal colic [Recovering/Resolving]
